FAERS Safety Report 26139225 (Version 1)
Quarter: 2025Q4

REPORT INFORMATION
  Report Type: Spontaneous
  Country: US (occurrence: US)
  Receive Date: 20251210
  Receipt Date: 20251210
  Transmission Date: 20260117
  Serious: Yes (Hospitalization, Other)
  Sender: CIPLA
  Company Number: US-MLMSERVICE-20251126-PI724020-00082-7

PATIENT

DRUGS (13)
  1. PACLITAXEL [Suspect]
     Active Substance: PACLITAXEL
     Indication: Ovarian cancer stage III
     Dosage: 135 MILLIGRAM/SQ. METER, IV PACLITAXEL 135 MG/M2 ON DAY 1
     Route: 042
     Dates: start: 201307, end: 201401
  2. PACLITAXEL [Suspect]
     Active Substance: PACLITAXEL
     Indication: Metastases to liver
     Dosage: 60 MILLIGRAM/SQ. METER, IP PACLITAXEL (60 MG/M2) ON DAY 8
     Route: 033
     Dates: start: 201307, end: 201401
  3. PACLITAXEL [Suspect]
     Active Substance: PACLITAXEL
     Indication: Metastases to peritoneum
     Dosage: 80 MILLIGRAM/SQ. METER, DOSE-DENSE (80 MG/M2 ON DAYS 1, 8, AND 15)
     Route: 042
     Dates: start: 2020, end: 2020
  4. CARBOPLATIN [Suspect]
     Active Substance: CARBOPLATIN
     Indication: Ovarian cancer stage III
     Dosage: UNK
     Route: 065
     Dates: start: 201604, end: 201703
  5. CARBOPLATIN [Suspect]
     Active Substance: CARBOPLATIN
     Indication: Disease recurrence
     Dosage: UNK, 3 CYCLES
     Route: 065
     Dates: start: 201806, end: 201809
  6. GEMCITABINE [Suspect]
     Active Substance: GEMCITABINE
     Indication: Ovarian cancer stage III
     Dosage: UNK
     Route: 065
     Dates: start: 201604, end: 201703
  7. GEMCITABINE [Suspect]
     Active Substance: GEMCITABINE
     Indication: Disease recurrence
  8. BEVACIZUMAB [Suspect]
     Active Substance: BEVACIZUMAB
     Indication: Ovarian cancer stage III
     Dosage: UNK
     Route: 065
     Dates: start: 201604, end: 201703
  9. BEVACIZUMAB [Suspect]
     Active Substance: BEVACIZUMAB
     Indication: Disease recurrence
  10. CISPLATIN [Suspect]
     Active Substance: CISPLATIN
     Indication: Ovarian cancer stage III
     Dosage: 60 MILLIGRAM/SQ. METER,  IV CISPLATIN 60 MG/M2 ON DAY 1; 6 CYCLES
     Route: 042
     Dates: start: 201307, end: 201401
  11. TRASTUZUMAB [Concomitant]
     Active Substance: TRASTUZUMAB
     Indication: Ovarian cancer stage III
     Dosage: 4 MILLIGRAM/KILOGRAM EVERY TWO WEEKS
     Route: 065
     Dates: start: 2020
  12. TRASTUZUMAB [Concomitant]
     Active Substance: TRASTUZUMAB
     Indication: Metastases to liver
  13. TRASTUZUMAB [Concomitant]
     Active Substance: TRASTUZUMAB
     Indication: Metastases to peritoneum

REACTIONS (5)
  - Small intestinal obstruction [Unknown]
  - Thrombocytopenia [Unknown]
  - Myelosuppression [Unknown]
  - Pneumonia [Recovered/Resolved]
  - Neutropenia [Unknown]

NARRATIVE: CASE EVENT DATE: 20130101
